FAERS Safety Report 18149701 (Version 1)
Quarter: 2020Q3

REPORT INFORMATION
  Report Type: Report from Study
  Country: GB (occurrence: GB)
  Receive Date: 20200814
  Receipt Date: 20200814
  Transmission Date: 20201103
  Serious: Yes (Other)
  Sender: FDA-Public Use
  Company Number: GB-ASPEN-GLO2020GB007761

PATIENT
  Sex: Female

DRUGS (4)
  1. CYCLOPHOSPHAMIDE. [Suspect]
     Active Substance: CYCLOPHOSPHAMIDE
     Indication: AMYLOIDOSIS
     Dosage: UNK
     Route: 065
  2. DEXAMETHASONE. [Suspect]
     Active Substance: DEXAMETHASONE
     Indication: AMYLOIDOSIS
     Dosage: REDUCED TO 10MG HALFWAY THROUGH 3RD CYCLE,
     Route: 048
  3. VELCADE [Suspect]
     Active Substance: BORTEZOMIB
     Indication: AMYLOIDOSIS
     Route: 058
  4. DEXAMETHASONE. [Suspect]
     Active Substance: DEXAMETHASONE
     Dosage: 20 MG
     Route: 048

REACTIONS (9)
  - Injection site pruritus [Unknown]
  - Sleep disorder [Unknown]
  - Injection site rash [Unknown]
  - Heart rate increased [Unknown]
  - Product use in unapproved indication [Unknown]
  - COVID-19 [Unknown]
  - Off label use [Unknown]
  - Arrhythmia [Unknown]
  - Hypotension [Unknown]
